FAERS Safety Report 8162457-2 (Version None)
Quarter: 2012Q1

REPORT INFORMATION
  Report Type: 
  Country: None (occurrence: None)
  Receive Date: 20120224
  Receipt Date: 20120216
  Transmission Date: 20120608
  Serious: Yes (Other)
  Sender: FDA-Public Use
  Company Number: US-BAYER-2011-067921

PATIENT
  Age: 27 Year
  Sex: Female
  Weight: 68.9 kg

DRUGS (1)
  1. MIRENA [Suspect]
     Indication: CONTRACEPTION
     Dosage: 20 ?G, CONT
     Route: 015
     Dates: start: 20110607

REACTIONS (5)
  - MEDICAL DEVICE COMPLICATION [None]
  - PREGNANCY WITH CONTRACEPTIVE DEVICE [None]
  - UTERINE PERFORATION [None]
  - NAUSEA [None]
  - DEVICE DISLOCATION [None]
